FAERS Safety Report 9294484 (Version 1)
Quarter: 2013Q1

REPORT INFORMATION
  Report Type: Spontaneous
  Country: US (occurrence: None)
  Receive Date: 20121227
  Receipt Date: 20121227
  Transmission Date: 20140127
  Serious: Yes (Disabling)
  Sender: FDA-Public Use
  Company Number: PHEH2011US010890

PATIENT
  Age: 82 Year
  Sex: Female

DRUGS (8)
  1. EXJADE [Suspect]
     Indication: IRON OVERLOAD
     Route: 048
     Dates: start: 20111128
  2. EXJADE [Suspect]
     Indication: HAEMOCHROMATOSIS
     Route: 048
     Dates: start: 20111128
  3. OMEPRAZOLE (OMEPRAZOLE) [Concomitant]
  4. SYNTHROID (LEVOTHYROXINE SODIUM) [Concomitant]
  5. LISINOPRIL (LISINOPRIL) [Concomitant]
  6. NORVASK (AMLODIPINE) [Concomitant]
  7. MULTIVITAMINS (NO INGREDIENTS/SUBSTANCES) [Concomitant]
  8. CHEMOTHERAPEUTICS, OTHER (CHEMOTHERAPEUTICS, OTHER) [Concomitant]

REACTIONS (4)
  - Abdominal pain [None]
  - Diarrhoea [None]
  - Haemorrhoids [None]
  - Abdominal discomfort [None]
